FAERS Safety Report 12213200 (Version 1)
Quarter: 2016Q1

REPORT INFORMATION
  Report Type: Spontaneous
  Country: US (occurrence: US)
  Receive Date: 20160328
  Receipt Date: 20160328
  Transmission Date: 20160526
  Serious: No
  Sender: FDA-Public Use
  Company Number: US-BIOGEN-2016BI00207878

PATIENT
  Sex: Female

DRUGS (1)
  1. TECFIDERA [Suspect]
     Active Substance: DIMETHYL FUMARATE
     Indication: MULTIPLE SCLEROSIS
     Route: 065

REACTIONS (7)
  - Weight increased [Unknown]
  - Abdominal discomfort [Unknown]
  - Alopecia [Unknown]
  - Rash generalised [Unknown]
  - Hot flush [Unknown]
  - Dyspepsia [Unknown]
  - Nausea [Unknown]
